FAERS Safety Report 6633640-X (Version None)
Quarter: 2010Q1

REPORT INFORMATION
  Report Type: 
  Country: None (occurrence: None)
  Receive Date: 20100312
  Receipt Date: 20100222
  Transmission Date: 20100710
  Serious: Yes (Hospitalization)
  Sender: FDA-Public Use
  Company Number: ES-WATSON-2010-02435

PATIENT
  Age: 77 Year
  Sex: Male

DRUGS (2)
  1. MICROZIDE [Suspect]
     Indication: HYPERTENSION
     Dosage: UNK
     Route: 065
  2. ENALAPRIL MALEATE [Suspect]
     Indication: HYPERTENSION
     Dosage: UNK
     Route: 065

REACTIONS (5)
  - DYSARTHRIA [None]
  - EMBOLIC STROKE [None]
  - HEMIANOPIA [None]
  - HYPOAESTHESIA [None]
  - MUSCULAR WEAKNESS [None]
